FAERS Safety Report 19436562 (Version 1)
Quarter: 2021Q2

REPORT INFORMATION
  Report Type: Spontaneous
  Country: US (occurrence: US)
  Receive Date: 20210618
  Receipt Date: 20210618
  Transmission Date: 20210717
  Serious: No
  Sender: FDA-Public Use
  Company Number: US-PFIZER INC-2021264391

PATIENT
  Age: 54 Year
  Sex: Male
  Weight: 118.84 kg

DRUGS (2)
  1. FELDENE [Suspect]
     Active Substance: PIROXICAM
     Indication: PAIN
     Dosage: 20 MG, 1X/DAY (AT BEDTIME)
  2. VOLTAREN [DICLOFENAC] [Concomitant]
     Active Substance: DICLOFENAC SODIUM

REACTIONS (1)
  - Productive cough [Unknown]
